FAERS Safety Report 7171538-1 (Version None)
Quarter: 2010Q4

REPORT INFORMATION
  Report Type: 
  Country: None (occurrence: None)
  Receive Date: 20101217
  Receipt Date: 20101206
  Transmission Date: 20110411
  Serious: Yes (Hospitalization)
  Sender: FDA-Public Use
  Company Number: FR-AMGEN-US403594

PATIENT

DRUGS (3)
  1. ENBREL [Suspect]
     Indication: RHEUMATOID ARTHRITIS
     Dosage: 25 MG, QWK
     Route: 058
     Dates: start: 20100125, end: 20100204
  2. CELECOXIB [Suspect]
     Dosage: UNK UNK, PRN
     Route: 048
  3. CELECOXIB [Suspect]
     Dosage: 200 MG, QD
     Route: 048
     Dates: start: 20100209

REACTIONS (5)
  - ARTHRALGIA [None]
  - ASTHENIA [None]
  - RASH PRURITIC [None]
  - URTICARIA [None]
  - VISUAL IMPAIRMENT [None]
